FAERS Safety Report 10258615 (Version 1)
Quarter: 2014Q2

REPORT INFORMATION
  Report Type: Spontaneous
  Country: IT (occurrence: IT)
  Receive Date: 20140625
  Receipt Date: 20140625
  Transmission Date: 20141212
  Serious: Yes (Other)
  Sender: FDA-Public Use
  Company Number: IT-BRISTOL-MYERS SQUIBB COMPANY-21015565

PATIENT
  Age: 88 Year
  Sex: Male

DRUGS (9)
  1. COUMADIN TABS 5 MG [Suspect]
     Indication: ATRIAL FIBRILLATION
     Dosage: 1DF=1UNIT
     Route: 048
     Dates: start: 20140101, end: 20140502
  2. LOSARTAN [Concomitant]
     Route: 048
  3. FUROSEMIDE [Concomitant]
     Route: 048
  4. POTASSIUM CANRENOATE [Concomitant]
     Route: 048
  5. METFORMIN [Concomitant]
     Route: 048
  6. SELOKEN [Concomitant]
     Dosage: SELOKEN 100 MG TABS?1DF=1UNIT
     Route: 048
  7. EUTIROX [Concomitant]
     Dosage: EUTIROX 50 MCG TABS?1DF=1UNIT
     Route: 048
  8. LANOXIN [Concomitant]
     Dosage: 0.125 MG TABS?1DF=1UNIT
     Route: 048
  9. QUETIAPINE [Concomitant]
     Dosage: QUENTIAX 25 MG TABS?1DF=1UNIT
     Route: 048

REACTIONS (3)
  - Acute myocardial infarction [Recovering/Resolving]
  - Fall [Recovering/Resolving]
  - Haematoma [Recovering/Resolving]
